FAERS Safety Report 5619282-3 (Version None)
Quarter: 2008Q1

REPORT INFORMATION
  Report Type: 
  Country: None (occurrence: None)
  Receive Date: 20080205
  Receipt Date: 20080123
  Transmission Date: 20080703
  Serious: Yes (Other)
  Sender: FDA-Public Use
  Company Number: GXKR2008IL01071

PATIENT
  Age: 90 Year
  Sex: Female

DRUGS (4)
  1. METRONIDAZOLE [Suspect]
     Indication: PNEUMONIA ASPIRATION
     Dosage: 500 MG, TID, INTRAVENOUS
     Route: 042
  2. CEFTRIAXONE [Concomitant]
  3. LEVODOPA (LEVODOPA) [Concomitant]
  4. CALCIUM (CALCIUM) [Concomitant]

REACTIONS (2)
  - ELECTROCARDIOGRAM QT PROLONGED [None]
  - GENE MUTATION [None]
